FAERS Safety Report 17073814 (Version 1)
Quarter: 2019Q4

REPORT INFORMATION
  Report Type: Spontaneous
  Country: NL (occurrence: NL)
  Receive Date: 20191126
  Receipt Date: 20191126
  Transmission Date: 20200122
  Serious: No
  Sender: FDA-Public Use
  Company Number: NL-BEH-2019109825

PATIENT
  Age: 62 Year
  Sex: Female

DRUGS (2)
  1. HIZENTRA [Suspect]
     Active Substance: HUMAN IMMUNOGLOBULIN G
     Indication: HYPOGAMMAGLOBULINAEMIA
     Dosage: 20 MILLILITER, QW
     Route: 058
     Dates: start: 20191025
  2. RIZATRIPTAN. [Concomitant]
     Active Substance: RIZATRIPTAN
     Indication: PREMEDICATION
     Dosage: 10 MILLIGRAM (1 TABLET), AT 10:00 AND 22:00 ON THE DAY OF THE TREATMENT
     Route: 065

REACTIONS (1)
  - Migraine [Recovered/Resolved]

NARRATIVE: CASE EVENT DATE: 20191117
